FAERS Safety Report 5514237-1 (Version None)
Quarter: 2007Q4

REPORT INFORMATION
  Report Type: 
  Country: None (occurrence: None)
  Receive Date: 20071113
  Receipt Date: 20071029
  Transmission Date: 20080405
  Serious: Yes (Other)
  Sender: FDA-Public Use
  Company Number: US-ELI_LILLY_AND_COMPANY-US200710007213

PATIENT
  Age: 53 Year
  Sex: Female

DRUGS (1)
  1. EVISTA [Suspect]
     Indication: OSTEOPOROSIS
     Dosage: 60 MG, UNK
     Route: 048
     Dates: start: 20050801, end: 20050901

REACTIONS (1)
  - TRANSIENT ISCHAEMIC ATTACK [None]
